FAERS Safety Report 8574869-3 (Version None)
Quarter: 2012Q3

REPORT INFORMATION
  Report Type: 
  Country: None (occurrence: None)
  Receive Date: 20120807
  Receipt Date: 20120731
  Transmission Date: 20120928
  Serious: Yes (Other)
  Sender: FDA-Public Use
  Company Number: JP-ELI_LILLY_AND_COMPANY-JP201208000433

PATIENT
  Sex: Male

DRUGS (5)
  1. PARAPLATIN [Concomitant]
     Indication: LUNG ADENOCARCINOMA
  2. BEVACIZUMAB [Concomitant]
     Indication: LUNG ADENOCARCINOMA
  3. FOLIC ACID [Concomitant]
  4. VITAMIN B-12 [Concomitant]
  5. ALIMTA [Suspect]
     Indication: LUNG ADENOCARCINOMA
     Route: 042

REACTIONS (2)
  - CHEST PAIN [None]
  - ATRIOVENTRICULAR BLOCK [None]
